FAERS Safety Report 4321182-6 (Version None)
Quarter: 2004Q1

REPORT INFORMATION
  Report Type: 
  Country: None (occurrence: None)
  Receive Date: 20040322
  Receipt Date: 20030418
  Transmission Date: 20041129
  Serious: Yes (Disabling)
  Sender: FDA-Public Use
  Company Number: WAES 0304FRA00070

PATIENT
  Age: 80 Year
  Sex: Female

DRUGS (5)
  1. FOSAMAX [Suspect]
     Indication: OSTEOPOROSIS
     Route: 048
     Dates: start: 20020101, end: 20030101
  2. FOSAMAX [Suspect]
     Route: 048
     Dates: start: 20030101, end: 20030301
  3. DIGOXIN [Concomitant]
     Indication: CARDIAC FAILURE CONGESTIVE
     Route: 048
  4. FENTANYL [Concomitant]
     Indication: PAIN
     Route: 061
  5. FUROSEMIDE [Concomitant]
     Indication: CARDIAC FAILURE CONGESTIVE
     Route: 048

REACTIONS (1)
  - OEDEMA PERIPHERAL [None]
